FAERS Safety Report 26095200 (Version 1)
Quarter: 2025Q4

REPORT INFORMATION
  Report Type: Spontaneous
  Country: US (occurrence: US)
  Receive Date: 20251127
  Receipt Date: 20251127
  Transmission Date: 20260118
  Serious: No
  Sender: ROCHE
  Company Number: US-ROCHE-10000443887

PATIENT
  Sex: Male

DRUGS (4)
  1. HEMLIBRA [Suspect]
     Active Substance: EMICIZUMAB-KXWH
     Indication: Factor VIII deficiency
     Dosage: STRENGTH: 12 MG/0.4 ML AND 150 MG/ML
     Route: 058
     Dates: start: 202505
  2. Normal saline flush (5 ml) [Concomitant]
     Route: 050
  3. ADVATE [Concomitant]
     Active Substance: ANTIHEMOPHILIC FACTOR, HUMAN RECOMBINANT
  4. LIDOCAINE/PRILOCAINE CRM [Concomitant]

REACTIONS (1)
  - Fall [Unknown]
